FAERS Safety Report 11593131 (Version 1)
Quarter: 2015Q4

REPORT INFORMATION
  Report Type: Spontaneous
  Country: US (occurrence: US)
  Receive Date: 20151005
  Receipt Date: 20151005
  Transmission Date: 20160304
  Serious: Yes (Hospitalization)
  Sender: FDA-Public Use
  Company Number: US-JNJFOC-951219-107052538

PATIENT
  Age: 44 Year
  Sex: Male

DRUGS (4)
  1. PARAFON FORTE DSC [Suspect]
     Active Substance: CHLORZOXAZONE
     Indication: PAIN
     Route: 065
     Dates: start: 19950828, end: 19950922
  2. TYLENOL WITH CODEINE [Suspect]
     Active Substance: ACETAMINOPHEN\CODEINE PHOSPHATE
     Indication: BACK PAIN
     Route: 065
     Dates: end: 19950922
  3. HYDROCODONE BITARTRATE. [Suspect]
     Active Substance: HYDROCODONE BITARTRATE
     Indication: BACK PAIN
     Route: 065
     Dates: end: 19950922
  4. ALEVE [Concomitant]
     Active Substance: NAPROXEN SODIUM
     Route: 065
     Dates: start: 19950828, end: 19950922

REACTIONS (3)
  - Dyspnoea [Unknown]
  - Respiratory disorder [Unknown]
  - Hepatitis [Unknown]

NARRATIVE: CASE EVENT DATE: 19950921
